FAERS Safety Report 5083653-7 (Version None)
Quarter: 2006Q3

REPORT INFORMATION
  Report Type: 
  Country: None (occurrence: None)
  Receive Date: 20060818
  Receipt Date: 20060712
  Transmission Date: 20061208
  Serious: Yes (Life-Threatening, Hospitalization)
  Sender: FDA-Public Use
  Company Number: DE-GILEAD-2006-0009856

PATIENT
  Sex: Male
  Weight: 58 kg

DRUGS (4)
  1. TRUVADA [Suspect]
     Indication: HIV INFECTION
     Dates: start: 20060401, end: 20060630
  2. KALETRA [Concomitant]
     Indication: HIV INFECTION
     Dates: end: 20060601
  3. ATAZANAVIR [Concomitant]
     Indication: HIV INFECTION
     Dates: end: 20060601
  4. D4T [Concomitant]
     Indication: HIV INFECTION
     Route: 048
     Dates: end: 20060601

REACTIONS (4)
  - ASCITES [None]
  - NEUROPATHY PERIPHERAL [None]
  - PLEURAL EFFUSION [None]
  - RENAL FAILURE ACUTE [None]
